FAERS Safety Report 15273922 (Version 2)
Quarter: 2019Q1

REPORT INFORMATION
  Report Type: Spontaneous
  Country: IN (occurrence: IN)
  Receive Date: 20180814
  Receipt Date: 20190227
  Transmission Date: 20190417
  Serious: Yes (Hospitalization)
  Sender: FDA-Public Use
  Company Number: IN-SUN PHARMACEUTICAL INDUSTRIES LTD-2018R1-181308

PATIENT
  Age: 60 Year
  Sex: Female

DRUGS (9)
  1. PIRACETAM [Interacting]
     Active Substance: PIRACETAM
     Indication: PRODUCT USED FOR UNKNOWN INDICATION
     Dosage: 800 MILLIGRAM, TID
     Route: 065
  2. OLMESARTAN [Concomitant]
     Active Substance: OLMESARTAN
     Indication: SEIZURE
     Dosage: 20 MG/D
     Route: 065
  3. CITICOLINE [Interacting]
     Active Substance: CITICOLINE
     Indication: PRODUCT USED FOR UNKNOWN INDICATION
     Dosage: 500 MG/D
     Route: 065
  4. RISPERIDONE. [Interacting]
     Active Substance: RISPERIDONE
     Indication: SEIZURE
     Dosage: LOWEST POSSIBLE THERAPEUTIC DOSE
     Route: 065
     Dates: start: 2002
  5. CLOBAZAM. [Concomitant]
     Active Substance: CLOBAZAM
     Indication: SEIZURE
     Dosage: 10 MG/D
     Route: 065
  6. DONEPEZIL. [Suspect]
     Active Substance: DONEPEZIL
     Indication: PRODUCT USED FOR UNKNOWN INDICATION
     Dosage: 10 MG/D
     Route: 065
  7. OXCARBAZEPINE. [Concomitant]
     Active Substance: OXCARBAZEPINE
     Indication: SEIZURE
     Dosage: 600 MILLIGRAM, BID
     Route: 065
  8. VALPROATE [Concomitant]
     Active Substance: VALPROIC ACID
     Indication: SEIZURE
     Dosage: UNK
     Route: 065
  9. CLONAZEPAM. [Concomitant]
     Active Substance: CLONAZEPAM
     Indication: SEIZURE
     Dosage: 0.5 MG/D
     Route: 065

REACTIONS (2)
  - Neuroleptic malignant syndrome [Recovering/Resolving]
  - Drug interaction [Unknown]
